FAERS Safety Report 19249789 (Version 3)
Quarter: 2021Q2

REPORT INFORMATION
  Report Type: Spontaneous
  Country: PL (occurrence: PL)
  Receive Date: 20210513
  Receipt Date: 20210529
  Transmission Date: 20210717
  Serious: Yes (Death, Life-Threatening, Other)
  Sender: FDA-Public Use
  Company Number: PL-AMGEN-POLSP2021072664

PATIENT

DRUGS (3)
  1. DEXAVEN [Concomitant]
     Active Substance: DEXAMETHASONE
     Indication: TREMOR
  2. BLINCYTO [Suspect]
     Active Substance: BLINATUMOMAB
     Indication: ACUTE LYMPHOCYTIC LEUKAEMIA RECURRENT
     Dosage: UNK
     Route: 042
  3. L?ASPARAGINASE [Suspect]
     Active Substance: ASPARAGINASE
     Indication: ACUTE LYMPHOCYTIC LEUKAEMIA RECURRENT
     Dosage: UNK
     Route: 065

REACTIONS (26)
  - Anxiety [Unknown]
  - Hypertension [Unknown]
  - Infusion related reaction [Unknown]
  - Therapy non-responder [Unknown]
  - Tachycardia [Unknown]
  - Acute lymphocytic leukaemia recurrent [Fatal]
  - Capillary leak syndrome [Unknown]
  - Cognitive disorder [Unknown]
  - Alanine aminotransferase increased [Unknown]
  - Thrombocytopenia [Unknown]
  - Cytokine release syndrome [Unknown]
  - Coordination abnormal [Unknown]
  - Headache [Unknown]
  - Speech disorder [Unknown]
  - Minimal residual disease [Unknown]
  - Off label use [Unknown]
  - Hyperferritinaemia [Unknown]
  - Neurotoxicity [Unknown]
  - Hypokalaemia [Unknown]
  - Tremor [Unknown]
  - Seizure [Unknown]
  - Aspartate aminotransferase increased [Unknown]
  - Nausea [Unknown]
  - Pain in extremity [Unknown]
  - Pyrexia [Unknown]
  - Anaemia [Unknown]
